FAERS Safety Report 8674711 (Version 2)
Quarter: 2013Q4

REPORT INFORMATION
  Report Type: Report from Study
  Country: CA (occurrence: CA)
  Receive Date: 20120720
  Receipt Date: 20131219
  Transmission Date: 20140711
  Serious: Yes (Hospitalization, Other)
  Sender: FDA-Public Use
  Company Number: CA-JNJFOC-20120705759

PATIENT
  Age: 54 Year
  Sex: Male
  Weight: 85.3 kg

DRUGS (6)
  1. REMICADE [Suspect]
     Indication: COLITIS ULCERATIVE
     Route: 042
     Dates: start: 20110714
  2. ASACOL [Concomitant]
     Route: 065
  3. CODEINE [Concomitant]
     Route: 065
  4. WARFARIN [Concomitant]
     Route: 065
  5. METFORMIN [Concomitant]
     Route: 065
  6. HYDROXYZINE [Concomitant]
     Route: 065

REACTIONS (2)
  - Rectal haemorrhage [Not Recovered/Not Resolved]
  - Haemoglobin decreased [Not Recovered/Not Resolved]
